FAERS Safety Report 6336204-0 (Version None)
Quarter: 2009Q3

REPORT INFORMATION
  Report Type: 
  Country: None (occurrence: None)
  Receive Date: 20090831
  Receipt Date: 20090831
  Transmission Date: 20100115
  Serious: Yes (Other)
  Sender: FDA-Public Use
  Company Number: None

PATIENT
  Sex: Female
  Weight: 56.6996 kg

DRUGS (3)
  1. CLARITIN-D 24 HOUR [Suspect]
     Indication: MULTIPLE ALLERGIES
     Dosage: 1 TABLET DAILY PO
     Route: 048
     Dates: start: 20040301, end: 20090507
  2. CLARITIN-D 24 HOUR [Suspect]
     Indication: SEASONAL ALLERGY
     Dosage: 1 TABLET DAILY PO
     Route: 048
     Dates: start: 20040301, end: 20090507
  3. CLARITIN-D 24 HOUR [Suspect]

REACTIONS (7)
  - DYSURIA [None]
  - FLANK PAIN [None]
  - MICTURITION URGENCY [None]
  - POLLAKIURIA [None]
  - SUPRAPUBIC PAIN [None]
  - URETHRAL PAIN [None]
  - URETHRITIS NONINFECTIVE [None]
